FAERS Safety Report 10149924 (Version 1)
Quarter: 2014Q2

REPORT INFORMATION
  Report Type: Spontaneous
  Country: US (occurrence: None)
  Receive Date: 20140501
  Receipt Date: 20140501
  Transmission Date: 20141212
  Serious: No
  Sender: FDA-Public Use
  Company Number: None

PATIENT
  Age: 67 Year
  Sex: Male
  Weight: 78.93 kg

DRUGS (1)
  1. CHLORHEXIDINE GLUCONATE [Suspect]
     Indication: PREOPERATIVE CARE
     Dates: start: 20140416, end: 20140417

REACTIONS (3)
  - Rash erythematous [None]
  - Urticaria [None]
  - Type IV hypersensitivity reaction [None]
